FAERS Safety Report 7009896-0 (Version None)
Quarter: 2010Q3

REPORT INFORMATION
  Report Type: 
  Country: None (occurrence: None)
  Receive Date: 20100923
  Receipt Date: 20100913
  Transmission Date: 20110219
  Serious: Yes (Hospitalization)
  Sender: FDA-Public Use
  Company Number: PHHY2010FR61459

PATIENT
  Age: 46 Year
  Sex: Female

DRUGS (3)
  1. TEGRETOL [Suspect]
     Dosage: 3.5 DF, QD
     Dates: start: 19950101
  2. TEGRETOL [Suspect]
     Dosage: UNK
  3. TEMODAL [Concomitant]
     Indication: GLIOMA
     Dosage: UNK

REACTIONS (8)
  - ASTHENIA [None]
  - DRUG LEVEL INCREASED [None]
  - DYSKINESIA [None]
  - DYSPEPSIA [None]
  - HYPOTENSION [None]
  - LEUKOPENIA [None]
  - PYELONEPHRITIS [None]
  - URINARY TRACT INFECTION [None]
